FAERS Safety Report 8027143-8 (Version None)
Quarter: 2012Q1

REPORT INFORMATION
  Report Type: 
  Country: None (occurrence: None)
  Receive Date: 20120106
  Receipt Date: 20111223
  Transmission Date: 20120608
  Serious: Yes (Other)
  Sender: FDA-Public Use
  Company Number: PHHY2011AU112603

PATIENT
  Age: 28 Year
  Sex: Female

DRUGS (5)
  1. DEFERASIROX [Suspect]
     Dosage: 250 MG, DAILY
  2. DEFERASIROX [Suspect]
     Dosage: 750 MG, DAILY
  3. DEFERASIROX [Suspect]
     Dosage: 1 G, DAILY
     Dates: end: 20090101
  4. DEFERASIROX [Suspect]
     Dosage: 500 MG, DAILY
  5. VITAMIN D [Concomitant]
     Dosage: 1000 IU, DAILY

REACTIONS (6)
  - AMINOACIDURIA [None]
  - HYPOPHOSPHATAEMIA [None]
  - RENAL TUBULAR DISORDER [None]
  - PROTEINURIA [None]
  - OSTEOMALACIA [None]
  - GLYCOSURIA [None]
